FAERS Safety Report 10191656 (Version 2)
Quarter: 2014Q2

REPORT INFORMATION
  Report Type: Spontaneous
  Country: US (occurrence: US)
  Receive Date: 20140523
  Receipt Date: 20140523
  Transmission Date: 20141212
  Serious: Yes (Other)
  Sender: FDA-Public Use
  Company Number: US-PFIZER INC-2013188694

PATIENT
  Age: 65 Year
  Sex: Female
  Weight: 108.84 kg

DRUGS (3)
  1. LYRICA [Suspect]
     Dosage: 100 MG, 2X/DAY
     Dates: end: 20140410
  2. ALBUTEROL [Concomitant]
     Indication: ASTHMA
     Dosage: UNK
  3. NASACORT [Concomitant]
     Indication: ASTHMA
     Dosage: UNK

REACTIONS (5)
  - Gastrointestinal disorder [Unknown]
  - Pain [Unknown]
  - Nausea [Unknown]
  - Dysphagia [Unknown]
  - Allergy to chemicals [Unknown]
